FAERS Safety Report 24627309 (Version 1)
Quarter: 2024Q4

REPORT INFORMATION
  Report Type: Other
  Country: JP (occurrence: JP)
  Receive Date: 20241116
  Receipt Date: 20241116
  Transmission Date: 20250115
  Serious: Yes (Hospitalization)
  Sender: AIRGAS
  Company Number: JP-ALSI-2024000286

PATIENT
  Age: 64 Year
  Sex: Male

DRUGS (1)
  1. OXYGEN [Suspect]
     Active Substance: OXYGEN
     Indication: Idiopathic pneumonia syndrome

REACTIONS (3)
  - Endocarditis staphylococcal [Recovering/Resolving]
  - Nasal septum perforation [Recovering/Resolving]
  - Nasal dryness [Recovering/Resolving]
